FAERS Safety Report 11346966 (Version 2)
Quarter: 2016Q1

REPORT INFORMATION
  Report Type: Spontaneous
  Country: US (occurrence: US)
  Receive Date: 20150806
  Receipt Date: 20160224
  Transmission Date: 20160525
  Serious: Yes (Hospitalization, Other)
  Sender: FDA-Public Use
  Company Number: US-BAYER-2015-395066

PATIENT
  Age: 32 Year
  Sex: Female

DRUGS (2)
  1. ACYCLOVIR [ACICLOVIR SODIUM] [Concomitant]
     Indication: HERPES ZOSTER
     Dosage: UNK
     Dates: start: 2000
  2. MIRENA [Suspect]
     Active Substance: LEVONORGESTREL
     Dosage: 20 MCG/24HR, CONT
     Route: 015

REACTIONS (8)
  - Device issue [None]
  - Abortion spontaneous [None]
  - Pregnancy with contraceptive device [None]
  - Drug ineffective [None]
  - Embedded device [None]
  - Device difficult to use [None]
  - Device failure [None]
  - Genital haemorrhage [None]

NARRATIVE: CASE EVENT DATE: 2013
